FAERS Safety Report 4465555-X (Version None)
Quarter: 2004Q4

REPORT INFORMATION
  Report Type: 
  Country: None (occurrence: None)
  Receive Date: 20041004
  Receipt Date: 20040726
  Transmission Date: 20050328
  Serious: No
  Sender: FDA-Public Use
  Company Number: US-GLAXOSMITHKLINE-A0519724A

PATIENT
  Age: 64 Year
  Sex: Female

DRUGS (3)
  1. IMITREX [Suspect]
     Indication: MIGRAINE
     Route: 045
     Dates: start: 19970101
  2. MULTIPLE MEDICATIONS [Concomitant]
  3. IMITREX [Concomitant]
     Route: 058

REACTIONS (1)
  - DRUG INEFFECTIVE [None]
